FAERS Safety Report 4568174-X (Version None)
Quarter: 2005Q1

REPORT INFORMATION
  Report Type: 
  Country: None (occurrence: None)
  Receive Date: 20050202
  Receipt Date: 20050126
  Transmission Date: 20050727
  Serious: Yes (Other)
  Sender: FDA-Public Use
  Company Number: DE-MERCK-0501DEU00259

PATIENT
  Age: 65 Year
  Sex: Male
  Weight: 69 kg

DRUGS (2)
  1. VIOXX [Suspect]
     Indication: RIB FRACTURE
     Route: 048
     Dates: start: 20040209, end: 20040212
  2. VIOXX [Suspect]
     Route: 048
     Dates: start: 20040213, end: 20040223

REACTIONS (1)
  - PHLEBOTHROMBOSIS [None]
